FAERS Safety Report 6718489-1 (Version None)
Quarter: 2010Q2

REPORT INFORMATION
  Report Type: 
  Country: None (occurrence: None)
  Receive Date: 20100510
  Receipt Date: 20100430
  Transmission Date: 20101027
  Serious: Yes (Death, Hospitalization, Other)
  Sender: FDA-Public Use
  Company Number: US-PFIZER INC-2009262402

PATIENT
  Sex: Male
  Weight: 87.982 kg

DRUGS (11)
  1. REVATIO [Suspect]
     Indication: PULMONARY HYPERTENSION
     Dosage: 20 MG, 3X/DAY
     Dates: start: 20090805
  2. AMBRISENTAN [Concomitant]
     Dosage: 10 MG, 1X/DAY
     Route: 048
     Dates: start: 20090625
  3. LASIX [Concomitant]
     Dosage: 10 MG, 1X/DAY
     Route: 048
  4. ALLOPURINOL [Concomitant]
     Dosage: 100 MG, 1X/DAY
     Route: 048
  5. CARDIZEM [Concomitant]
     Dosage: 120 MG, 1X/DAY
     Route: 048
  6. TOPROL-XL [Concomitant]
     Dosage: 12.5 MG, 1X/DAY
     Route: 048
  7. POTASSIUM CHLORIDE [Concomitant]
     Dosage: 1/2 DAILY
     Route: 048
  8. GLIPIZIDE [Concomitant]
     Dosage: 5 MG, 1X/DAY
     Route: 048
  9. ZEMPLAR [Concomitant]
     Dosage: 1 UG, MON-FRI
     Route: 048
  10. LIPITOR [Concomitant]
     Dosage: 20 MG, 1X/DAY
     Route: 048
  11. LACTASE [Concomitant]

REACTIONS (7)
  - ACUTE RESPIRATORY FAILURE [None]
  - ATRIOVENTRICULAR BLOCK SECOND DEGREE [None]
  - CARDIAC FAILURE CONGESTIVE [None]
  - CHRONIC OBSTRUCTIVE PULMONARY DISEASE [None]
  - RENAL FAILURE [None]
  - UNRESPONSIVE TO STIMULI [None]
  - VENTRICULAR EXTRASYSTOLES [None]
